FAERS Safety Report 8905271 (Version 1)
Quarter: 2012Q4

REPORT INFORMATION
  Report Type: 
  Country: US (occurrence: US)
  Receive Date: 20121112
  Receipt Date: 20121112
  Transmission Date: 20130627
  Serious: Yes (Other)
  Sender: FDA-Public Use
  Company Number: US-BAYER-2012-116916

PATIENT
  Age: 25 Year
  Sex: Female
  Weight: 88 kg

DRUGS (3)
  1. BEYAZ [Suspect]
  2. CLARITIN [Concomitant]
  3. ARIXTRA [Concomitant]

REACTIONS (1)
  - Pulmonary embolism [None]
